FAERS Safety Report 20280864 (Version 1)
Quarter: 2022Q1

REPORT INFORMATION
  Report Type: Spontaneous
  Country: CN (occurrence: CN)
  Receive Date: 20220103
  Receipt Date: 20220103
  Transmission Date: 20220423
  Serious: Yes (Other)
  Sender: FDA-Public Use
  Company Number: CN-NOVARTISPH-NVSC2021CN297711

PATIENT
  Age: 26 Year
  Sex: Female

DRUGS (2)
  1. ELTROMBOPAG [Suspect]
     Active Substance: ELTROMBOPAG
     Indication: Immune thrombocytopenia
     Dosage: 50 MG, QD
     Route: 065
  2. ELTROMBOPAG [Suspect]
     Active Substance: ELTROMBOPAG
     Dosage: 25 MG, QD (DOSE REDUCED)
     Route: 065

REACTIONS (1)
  - Drug eruption [Recovered/Resolved]
